FAERS Safety Report 11795137 (Version 1)
Quarter: 2015Q4

REPORT INFORMATION
  Report Type: Spontaneous
  Country: NL (occurrence: NL)
  Receive Date: 20151202
  Receipt Date: 20151202
  Transmission Date: 20160305
  Serious: Yes (Hospitalization)
  Sender: FDA-Public Use
  Company Number: NL-CTI_01805_2015

PATIENT
  Sex: Female

DRUGS (1)
  1. BRAMITOB [Suspect]
     Active Substance: TOBRAMYCIN
     Indication: PRODUCT USED FOR UNKNOWN INDICATION
     Dosage: DF
     Dates: start: 20150929

REACTIONS (2)
  - Sense of oppression [Recovered/Resolved]
  - Hypersensitivity [Recovered/Resolved]
